FAERS Safety Report 7645724-8 (Version None)
Quarter: 2011Q3

REPORT INFORMATION
  Report Type: 
  Country: None (occurrence: None)
  Receive Date: 20110729
  Receipt Date: 20110725
  Transmission Date: 20111222
  Serious: Yes (Hospitalization, Other)
  Sender: FDA-Public Use
  Company Number: US-ABBOTT-11P-163-0841874-00

PATIENT
  Age: 68 Year
  Sex: Male

DRUGS (12)
  1. METOPROLOL TARTRATE [Concomitant]
     Indication: HYPERTENSION
     Dosage: 1/2 TABLET BID
  2. GLUCOTROL [Concomitant]
     Indication: DIABETES MELLITUS
     Dosage: 1/2 TABLET BID
  3. LIPITOR [Concomitant]
     Indication: BLOOD CHOLESTEROL INCREASED
  4. MOBIC [Concomitant]
     Indication: PAIN
  5. HUMIRA [Suspect]
     Indication: PSORIATIC ARTHROPATHY
     Dates: start: 20101201
  6. METHOTREXATE [Concomitant]
     Indication: PRODUCT USED FOR UNKNOWN INDICATION
  7. LISINOPRIL [Concomitant]
     Indication: HYPERTENSION
  8. HUMIRA [Suspect]
     Indication: RHEUMATOID ARTHRITIS
     Dates: start: 20080701, end: 20101201
  9. CYANOCOBALAMIN [Concomitant]
     Indication: SUPPLEMENTATION THERAPY
  10. VITAMIN TAB [Concomitant]
     Indication: PRODUCT USED FOR UNKNOWN INDICATION
     Dosage: DAILY
  11. METFORMIN HCL [Concomitant]
     Indication: DIABETES MELLITUS
  12. PANTOPRAZOLE SODIUM [Concomitant]
     Indication: GASTROOESOPHAGEAL REFLUX DISEASE

REACTIONS (10)
  - KNEE ARTHROPLASTY [None]
  - EYELID PTOSIS [None]
  - PSORIATIC ARTHROPATHY [None]
  - SPINAL FUSION SURGERY [None]
  - CORONARY ARTERY OCCLUSION [None]
  - INJECTION SITE HAEMORRHAGE [None]
  - RHEUMATOID ARTHRITIS [None]
  - CHEST PAIN [None]
  - ARTHRALGIA [None]
  - PSORIASIS [None]
